FAERS Safety Report 16536565 (Version 5)
Quarter: 2019Q3

REPORT INFORMATION
  Report Type: Spontaneous
  Country: US (occurrence: US)
  Receive Date: 20190706
  Receipt Date: 20190924
  Transmission Date: 20191004
  Serious: No
  Sender: FDA-Public Use
  Company Number: US-JNJFOC-20190704114

PATIENT
  Sex: Female
  Weight: 53.57 kg

DRUGS (1)
  1. WOMENS ROGAINE UNSCENTED [Suspect]
     Active Substance: MINOXIDIL
     Indication: ALOPECIA
     Dosage: HALF CAPFUL
     Route: 061

REACTIONS (5)
  - Inappropriate schedule of product administration [Unknown]
  - Hair colour changes [Not Recovered/Not Resolved]
  - Hair disorder [Recovered/Resolved]
  - Product lot number issue [Unknown]
  - Overdose [Unknown]
